FAERS Safety Report 5696357-4 (Version None)
Quarter: 2008Q2

REPORT INFORMATION
  Report Type: 
  Country: None (occurrence: None)
  Receive Date: 20080408
  Receipt Date: 20080326
  Transmission Date: 20081010
  Serious: Yes (Other)
  Sender: FDA-Public Use
  Company Number: US-PFIZER INC-2008027451

PATIENT
  Sex: Male
  Weight: 70.454 kg

DRUGS (3)
  1. CHANTIX [Suspect]
     Indication: SMOKING CESSATION THERAPY
     Route: 048
  2. HERBAL PREPARATION [Suspect]
     Route: 048
  3. DIAZEPAM [Concomitant]
     Indication: ANXIETY

REACTIONS (5)
  - ABNORMAL DREAMS [None]
  - DEPRESSION [None]
  - FEELING ABNORMAL [None]
  - PHARYNGEAL OEDEMA [None]
  - PHARYNGOLARYNGEAL PAIN [None]
